FAERS Safety Report 16577309 (Version 1)
Quarter: 2019Q3

REPORT INFORMATION
  Report Type: Spontaneous
  Country: FR (occurrence: FR)
  Receive Date: 20190716
  Receipt Date: 20190716
  Transmission Date: 20191004
  Serious: Yes (Hospitalization)
  Sender: FDA-Public Use
  Company Number: FR-TEVA-2019-FR-1077352

PATIENT
  Age: 17 Year
  Sex: Female
  Weight: 70 kg

DRUGS (2)
  1. DOLIPRANE [Suspect]
     Active Substance: ACETAMINOPHEN
     Indication: SUICIDE ATTEMPT
     Dosage: 5 GRAM, 1 TOTAL
     Route: 048
     Dates: start: 20180907, end: 20180907
  2. AMOXICILLINE [Suspect]
     Active Substance: AMOXICILLIN
     Indication: SUICIDE ATTEMPT
     Dosage: 5500 MILLIGRAM,1 TOTAL
     Route: 048
     Dates: start: 20180907, end: 20180907

REACTIONS (2)
  - Analgesic drug level increased [Recovered/Resolved]
  - Toxicity to various agents [Recovered/Resolved]

NARRATIVE: CASE EVENT DATE: 20180907
